FAERS Safety Report 5273198-3 (Version None)
Quarter: 2007Q1

REPORT INFORMATION
  Report Type: 
  Country: None (occurrence: None)
  Receive Date: 20070322
  Receipt Date: 20070319
  Transmission Date: 20070707
  Serious: Yes (Hospitalization)
  Sender: FDA-Public Use
  Company Number: SE-PFIZER INC-2007022175

PATIENT
  Sex: Female

DRUGS (9)
  1. ZYVOXID TABLET [Suspect]
     Indication: STAPHYLOCOCCAL INFECTION
     Route: 048
     Dates: start: 20070118, end: 20070123
  2. CITODON [Suspect]
     Indication: PAIN
     Route: 048
     Dates: start: 20070120, end: 20070122
  3. OMEPRAZOLE [Concomitant]
     Route: 048
  4. IBUPROFEN [Concomitant]
     Route: 048
  5. CLINDAMYCIN [Concomitant]
     Route: 030
  6. ALL OTHER THERAPEUTIC PRODUCTS [Concomitant]
     Route: 048
  7. CHLORHEXIDINE [Concomitant]
     Route: 048
  8. SODIUM CHLORIDE [Concomitant]
     Route: 042
  9. STREPTOKINASE [Concomitant]
     Route: 042

REACTIONS (1)
  - PANCREATITIS [None]
